FAERS Safety Report 8965363 (Version 1)
Quarter: 2012Q4

REPORT INFORMATION
  Report Type: 
  Country: US (occurrence: US)
  Receive Date: 20121213
  Receipt Date: 20121213
  Transmission Date: 20130627
  Serious: Yes (Hospitalization, Other)
  Sender: FDA-Public Use
  Company Number: US-009507513-1212USA001644

PATIENT
  Age: 14 Year
  Sex: Male
  Weight: 93 kg

DRUGS (6)
  1. ELSPAR [Suspect]
     Indication: B PRECURSOR TYPE ACUTE LEUKAEMIA
     Dosage: UNK, Cyclical
     Dates: start: 20120905, end: 20121012
  2. VELCADE [Suspect]
     Indication: B PRECURSOR TYPE ACUTE LEUKAEMIA
     Dosage: 1.3 mg/m2, Cyclical
     Route: 042
     Dates: start: 20120905, end: 20120917
  3. CYTARABINE [Suspect]
     Indication: B PRECURSOR TYPE ACUTE LEUKAEMIA
     Dosage: 30-70 mg, Cyclical
     Route: 037
     Dates: start: 20120905, end: 20120905
  4. METHOTREXATE [Suspect]
     Indication: B PRECURSOR TYPE ACUTE LEUKAEMIA
     Dosage: 8-15 mg, Cyclical
     Route: 037
     Dates: start: 20120905, end: 20121005
  5. PREDNISONE [Suspect]
     Indication: B PRECURSOR TYPE ACUTE LEUKAEMIA
     Dosage: 20 mg/m2, Cyclical
     Route: 048
     Dates: start: 20120905
  6. VINCRISTINE SULFATE [Suspect]
     Indication: B PRECURSOR TYPE ACUTE LEUKAEMIA
     Dosage: 1.5mg/m2, Cyclical
     Route: 042
     Dates: start: 20120905, end: 20120928

REACTIONS (4)
  - Sepsis [Recovering/Resolving]
  - Hypotension [Recovering/Resolving]
  - Skin ulcer [Recovering/Resolving]
  - Anal fistula [Recovering/Resolving]
